FAERS Safety Report 21320320 (Version 1)
Quarter: 2022Q3

REPORT INFORMATION
  Report Type: Spontaneous
  Country: US (occurrence: None)
  Receive Date: 20220911
  Receipt Date: 20220911
  Transmission Date: 20221027
  Serious: No
  Sender: FDA-Public Use
  Company Number: 2022A307797

PATIENT
  Sex: Female
  Weight: 63.5 kg

DRUGS (1)
  1. BUDESONIDE\FORMOTEROL\GLYCOPYRRONIUM [Suspect]
     Active Substance: BUDESONIDE\FORMOTEROL\GLYCOPYRRONIUM
     Indication: Asthma
     Dosage: 160/9/4.8 MCG 120 DOSE INHALER 1-2 PUFFS TWICE A DAY
     Route: 055

REACTIONS (3)
  - Chest discomfort [Unknown]
  - Wrong technique in product usage process [Unknown]
  - Device delivery system issue [Unknown]
